FAERS Safety Report 7775487-7 (Version None)
Quarter: 2011Q3

REPORT INFORMATION
  Report Type: 
  Country: None (occurrence: None)
  Receive Date: 20110923
  Receipt Date: 20110922
  Transmission Date: 20111222
  Serious: Yes (Death, Other)
  Sender: FDA-Public Use
  Company Number: PHHY2011BR43908

PATIENT
  Sex: Female

DRUGS (1)
  1. STALEVO 100 [Suspect]
     Dosage: 100 MG OF LEVO, 25 MG OF CARBI AND 200 MG OF ENTACAP

REACTIONS (3)
  - PNEUMONIA [None]
  - NEUROPATHY PERIPHERAL [None]
  - CEREBROVASCULAR ACCIDENT [None]
